FAERS Safety Report 18126556 (Version 1)
Quarter: 2020Q3

REPORT INFORMATION
  Report Type: Spontaneous
  Country: US (occurrence: US)
  Receive Date: 20200808
  Receipt Date: 20200808
  Transmission Date: 20201103
  Serious: No
  Sender: FDA-Public Use
  Company Number: US-009507513-2008USA001278

PATIENT
  Sex: Female

DRUGS (2)
  1. DEPO?PROVERA [Suspect]
     Active Substance: MEDROXYPROGESTERONE ACETATE
     Dosage: UNK
  2. NUVARING [Suspect]
     Active Substance: ETHINYL ESTRADIOL\ETONOGESTREL
     Dosage: ONE RING FOR EVERY 3 WEEKS, Q3W
     Route: 067

REACTIONS (3)
  - Weight increased [Unknown]
  - Abnormal withdrawal bleeding [Unknown]
  - Inappropriate schedule of product administration [Unknown]
